FAERS Safety Report 4754177-9 (Version None)
Quarter: 2005Q3

REPORT INFORMATION
  Report Type: 
  Country: None (occurrence: None)
  Receive Date: 20050826
  Receipt Date: 19940624
  Transmission Date: 20060218
  Serious: Yes (Other)
  Sender: FDA-Public Use
  Company Number: JP-ABBOTT-05P-087-0306535-00

PATIENT
  Age: 4 Year
  Sex: Male

DRUGS (5)
  1. ERYTHROCIN ORAL SUSPENSION [Suspect]
     Indication: BRONCHITIS ACUTE
     Route: 048
     Dates: start: 19940325, end: 19940326
  2. TULOBUTEROL [Suspect]
     Indication: DRUG USE FOR UNKNOWN INDICATION
     Route: 048
     Dates: start: 19940325, end: 19940326
  3. CYPROHEPTADINE HYDROCHLORIDE [Suspect]
     Indication: DRUG USE FOR UNKNOWN INDICATION
     Route: 048
     Dates: start: 19940325, end: 19940326
  4. CEFPODOXIME PROXETIL [Concomitant]
     Indication: DRUG USE FOR UNKNOWN INDICATION
     Route: 048
     Dates: start: 19940325, end: 19940331
  5. ASCORBIC ACID-CALCIUM PANTOTHENATE [Concomitant]
     Indication: DRUG USE FOR UNKNOWN INDICATION
     Route: 048
     Dates: start: 19940325

REACTIONS (3)
  - ABNORMAL BEHAVIOUR [None]
  - DELIRIUM [None]
  - SCREAMING [None]
